FAERS Safety Report 12065869 (Version 4)
Quarter: 2018Q4

REPORT INFORMATION
  Report Type: Spontaneous
  Country: US (occurrence: US)
  Receive Date: 20160211
  Receipt Date: 20181008
  Transmission Date: 20190204
  Serious: No
  Sender: FDA-Public Use
  Company Number: US-PFIZER INC-2016078889

PATIENT
  Sex: Female

DRUGS (1)
  1. LYRICA [Suspect]
     Active Substance: PREGABALIN
     Dosage: UNK UNK, 4X/DAY

REACTIONS (4)
  - Product dispensing error [Unknown]
  - Product use issue [Unknown]
  - Condition aggravated [Unknown]
  - Neuralgia [Unknown]
